FAERS Safety Report 6417933-7 (Version None)
Quarter: 2009Q4

REPORT INFORMATION
  Report Type: 
  Country: None (occurrence: None)
  Receive Date: 20091028
  Receipt Date: 20091021
  Transmission Date: 20100525
  Serious: Yes (Other)
  Sender: FDA-Public Use
  Company Number: CHPA2009US20622

PATIENT
  Age: 17 Year
  Sex: Female
  Weight: 58.957 kg

DRUGS (3)
  1. 1-DAY VAGINAL OINTMENT (NCH) [Suspect]
     Indication: VULVOVAGINAL MYCOTIC INFECTION
     Dosage: 300 MG, ONCE/SINGLE
     Route: 067
     Dates: start: 20090817, end: 20090817
  2. DIFLUCAN [Suspect]
     Dosage: UNK, UNK
  3. ORAL CONTRACEPTIVE NOS [Concomitant]

REACTIONS (4)
  - ANAPHYLACTIC REACTION [None]
  - CHEST PAIN [None]
  - DYSPNOEA [None]
  - VAGINAL SWELLING [None]
